FAERS Safety Report 21148949 (Version 1)
Quarter: 2022Q3

REPORT INFORMATION
  Report Type: Spontaneous
  Country: None (occurrence: US)
  Receive Date: 20220729
  Receipt Date: 20220729
  Transmission Date: 20221026
  Serious: No
  Sender: FDA-Public Use
  Company Number: US-Ascent Pharmaceuticals, Inc.-2131378

PATIENT
  Age: 21 Year
  Sex: Male
  Weight: 95.455 kg

DRUGS (2)
  1. METHYLPHENIDATE HYDROCHLORIDE [Suspect]
     Active Substance: METHYLPHENIDATE HYDROCHLORIDE
     Indication: Disability
     Route: 048
     Dates: end: 20220615
  2. Ratalin [Concomitant]
     Route: 065

REACTIONS (2)
  - Product quality issue [Unknown]
  - Intentional dose omission [Unknown]
